FAERS Safety Report 6641418-6 (Version None)
Quarter: 2010Q1

REPORT INFORMATION
  Report Type: 
  Country: None (occurrence: None)
  Receive Date: 20100317
  Receipt Date: 20100317
  Transmission Date: 20100710
  Serious: No
  Sender: FDA-Public Use
  Company Number: None

PATIENT
  Sex: Female
  Weight: 98.2 kg

DRUGS (2)
  1. MIRENA [Suspect]
     Indication: MENSTRUAL CYCLE MANAGEMENT
     Dosage: IUD
     Dates: start: 20090801
  2. MIRENA [Suspect]
     Indication: MENSTRUAL CYCLE MANAGEMENT
     Dosage: IUD
     Dates: start: 20100315

REACTIONS (10)
  - ABDOMINAL DISTENSION [None]
  - ARTHRALGIA [None]
  - BACK PAIN [None]
  - CONTUSION [None]
  - FATIGUE [None]
  - FLUID RETENTION [None]
  - IRRITABILITY [None]
  - MENORRHAGIA [None]
  - MUSCLE SPASMS [None]
  - PARAESTHESIA [None]
